FAERS Safety Report 21212153 (Version 4)
Quarter: 2022Q3

REPORT INFORMATION
  Report Type: Report from Study
  Country: US (occurrence: US)
  Receive Date: 20220815
  Receipt Date: 20220921
  Transmission Date: 20221026
  Serious: Yes (Hospitalization)
  Sender: FDA-Public Use
  Company Number: US-PFIZER INC-PV202200034959

PATIENT
  Age: 67 Year
  Sex: Male

DRUGS (4)
  1. AXITINIB [Suspect]
     Active Substance: AXITINIB
     Indication: Malignant melanoma of sites other than skin
     Dosage: 3 MG, 2X/DAY (FOR 28 DAYS LAST DOSE BEFORE SAE 28JUL2022)
     Route: 048
     Dates: start: 20220630
  2. NIVOLUMAB [Suspect]
     Active Substance: NIVOLUMAB
     Indication: Malignant melanoma of sites other than skin
     Dosage: 480 MG, CYCLIC (OVER 30 MINUTES Q4W; LAST DOSE BEFORE SAE 28JUL2022)
     Route: 042
     Dates: start: 20220630
  3. VITAMIN B12 [Concomitant]
     Active Substance: CYANOCOBALAMIN
     Dosage: UNK
  4. ELIQUIS [Concomitant]
     Active Substance: APIXABAN
     Dosage: UNK

REACTIONS (3)
  - Eye pain [Recovered/Resolved]
  - Dysphagia [Recovered/Resolved]
  - Fatigue [Recovered/Resolved]

NARRATIVE: CASE EVENT DATE: 20220729
